FAERS Safety Report 8469444-5 (Version None)
Quarter: 2012Q2

REPORT INFORMATION
  Report Type: 
  Country: None (occurrence: None)
  Receive Date: 20120621
  Receipt Date: 20120621
  Transmission Date: 20120825
  Serious: Yes (Other)
  Sender: FDA-Public Use
  Company Number: None

PATIENT
  Age: 87 Year
  Sex: Female
  Weight: 56.6996 kg

DRUGS (1)
  1. SULAR [Suspect]
     Dosage: 1 PILL PER DAY
     Dates: start: 20120124

REACTIONS (3)
  - PAIN IN EXTREMITY [None]
  - BREAST PAIN [None]
  - OEDEMA PERIPHERAL [None]
